FAERS Safety Report 11828769 (Version 4)
Quarter: 2016Q1

REPORT INFORMATION
  Report Type: Spontaneous
  Country: JP (occurrence: JP)
  Receive Date: 20151211
  Receipt Date: 20160329
  Transmission Date: 20160525
  Serious: Yes (Hospitalization, Other)
  Sender: FDA-Public Use
  Company Number: JP-BRISTOL-MYERS SQUIBB COMPANY-BMS-2015-085144

PATIENT
  Sex: Female
  Weight: 45 kg

DRUGS (11)
  1. METHYCOOL [Concomitant]
     Active Substance: METHYLCOBALAMIN
     Indication: COMPRESSION FRACTURE
     Dosage: 0.5 MG, TID
     Route: 048
  2. LOXOPROFEN SODIUM [Concomitant]
     Active Substance: LOXOPROFEN SODIUM
     Indication: COMPRESSION FRACTURE
     Dosage: 60 MG, QD
     Route: 048
  3. LANSOPRAZOLE. [Concomitant]
     Active Substance: LANSOPRAZOLE
     Indication: GASTROOESOPHAGEAL REFLUX DISEASE
     Dosage: 15 MG, QD
     Route: 048
  4. AZELNIDIPINE [Concomitant]
     Active Substance: AZELNIDIPINE
     Indication: HYPERTENSION
     Dosage: 8 MG, QD
     Route: 048
  5. HALCION [Concomitant]
     Active Substance: TRIAZOLAM
     Indication: INSOMNIA
     Dosage: 0.125 MG, QD
     Route: 048
  6. DAKLINZA [Suspect]
     Active Substance: DACLATASVIR
     Indication: CHRONIC HEPATITIS C
     Dosage: 60 MG, QD
     Route: 048
     Dates: start: 20151013
  7. OLMETEC [Concomitant]
     Active Substance: OLMESARTAN MEDOXOMIL
     Indication: HYPERTENSION
     Dosage: 20 MG, QD
     Route: 048
  8. URSODEOXYCHOLIC ACID [Concomitant]
     Active Substance: URSODIOL
     Indication: PRODUCT USED FOR UNKNOWN INDICATION
     Dosage: 100 MG, TID
     Route: 048
  9. EXCELASE [Concomitant]
     Active Substance: PANCRELIPASE
     Indication: GASTROOESOPHAGEAL REFLUX DISEASE
     Dosage: UNK UNK, BID
     Route: 048
  10. SUNVEPRA [Suspect]
     Active Substance: ASUNAPREVIR
     Indication: CHRONIC HEPATITIS C
     Dosage: 100 MG, BID
     Route: 048
     Dates: start: 20151013
  11. SPIRIVA [Concomitant]
     Active Substance: TIOTROPIUM BROMIDE MONOHYDRATE
     Indication: CHRONIC OBSTRUCTIVE PULMONARY DISEASE
     Dosage: 0.002 MG, BID
     Route: 050

REACTIONS (8)
  - Malaise [Recovered/Resolved]
  - Off label use [Unknown]
  - Constipation [Recovered/Resolved]
  - Decreased appetite [Recovered/Resolved]
  - Alanine aminotransferase increased [Recovering/Resolving]
  - Spinal compression fracture [Unknown]
  - Dyspepsia [Recovered/Resolved]
  - Thirst [Recovered/Resolved]
